FAERS Safety Report 4493301-2 (Version None)
Quarter: 2004Q4

REPORT INFORMATION
  Report Type: 
  Country: None (occurrence: None)
  Receive Date: 20041102
  Receipt Date: 20041020
  Transmission Date: 20050328
  Serious: Yes (Hospitalization)
  Sender: FDA-Public Use
  Company Number: US_0410107086

PATIENT
  Age: 46 Year
  Sex: Female
  Weight: 57 kg

DRUGS (11)
  1. DULOXETINE HYDROCHLORIDE [Suspect]
     Indication: MAJOR DEPRESSION
     Dosage: 60 MG/1 DAY
     Dates: start: 20040903
  2. ADDERALL 10 [Concomitant]
  3. LEXAPRO [Concomitant]
  4. DESIPRAMINE HCL [Concomitant]
  5. ASENDIN [Concomitant]
  6. KLONOPIN [Concomitant]
  7. ESCALIM [Concomitant]
  8. DOCUSATE SODIUM [Concomitant]
  9. FIBER [Concomitant]
  10. ACETAMINOPHEN [Concomitant]
  11. THYROID TAB [Concomitant]

REACTIONS (3)
  - CONDITION AGGRAVATED [None]
  - DEPRESSION [None]
  - SUICIDAL IDEATION [None]
